FAERS Safety Report 25120315 (Version 2)
Quarter: 2025Q1

REPORT INFORMATION
  Report Type: Report from Study
  Country: DE (occurrence: DE)
  Receive Date: 20250325
  Receipt Date: 20250330
  Transmission Date: 20250409
  Serious: Yes (Other)
  Sender: ABBVIE
  Company Number: DE-ABBVIE-6194078

PATIENT
  Sex: Female

DRUGS (1)
  1. FOSCARBIDOPA\FOSLEVODOPA [Suspect]
     Active Substance: FOSCARBIDOPA\FOSLEVODOPA
     Indication: Parkinson^s disease
     Route: 058
     Dates: start: 20241203

REACTIONS (4)
  - Sepsis [Recovered/Resolved]
  - Infusion site abscess [Not Recovered/Not Resolved]
  - Infusion site induration [Unknown]
  - Infusion site haemorrhage [Unknown]
